FAERS Safety Report 23496287 (Version 1)
Quarter: 2024Q1

REPORT INFORMATION
  Report Type: Spontaneous
  Country: US (occurrence: None)
  Receive Date: 20240207
  Receipt Date: 20240207
  Transmission Date: 20240410
  Serious: No
  Sender: FDA-Public Use
  Company Number: US-ROCHE-3356295

PATIENT
  Age: 77 Year
  Sex: Female

DRUGS (13)
  1. XOLAIR [Suspect]
     Active Substance: OMALIZUMAB
     Indication: Dermatitis atopic
     Dosage: VIAL?LAST DOSE OF XOLAIR ON 23/MAY/2023
     Route: 058
     Dates: start: 20150516
  2. VALACYCLOVIR [Concomitant]
     Active Substance: VALACYCLOVIR HYDROCHLORIDE
  3. CEFADROXIL [Concomitant]
     Active Substance: CEFADROXIL
  4. PREDNISONE [Concomitant]
     Active Substance: PREDNISONE
  5. AZITHROMYCIN [Concomitant]
     Active Substance: AZITHROMYCIN
  6. HYDROCODONE POLISTIREX [Concomitant]
     Active Substance: HYDROCODONE POLISTIREX
  7. ALBUTEROL SULFATE [Concomitant]
     Active Substance: ALBUTEROL SULFATE
  8. GUAIFENESIN [Concomitant]
     Active Substance: GUAIFENESIN
  9. LEVOFLOXACIN [Concomitant]
     Active Substance: LEVOFLOXACIN
  10. ZOLPIDEM TARTRATE [Concomitant]
     Active Substance: ZOLPIDEM TARTRATE
  11. AMOXICILLIN [Concomitant]
     Active Substance: AMOXICILLIN
  12. CEFDINIR [Concomitant]
     Active Substance: CEFDINIR
  13. DIAZEPAM [Concomitant]
     Active Substance: DIAZEPAM

REACTIONS (3)
  - Product dose omission in error [Unknown]
  - Off label use [Unknown]
  - No adverse event [Unknown]

NARRATIVE: CASE EVENT DATE: 20230509
